FAERS Safety Report 13149304 (Version 1)
Quarter: 2017Q1

REPORT INFORMATION
  Report Type: Report from Study
  Country: FR (occurrence: FR)
  Receive Date: 20170125
  Receipt Date: 20170125
  Transmission Date: 20170428
  Serious: Yes (Hospitalization, Other)
  Sender: FDA-Public Use
  Company Number: FR-PFIZER INC-2016541941

PATIENT
  Age: 62 Year
  Sex: Female
  Weight: 66 kg

DRUGS (19)
  1. CYTARABINE. [Suspect]
     Active Substance: CYTARABINE
     Indication: ACUTE MYELOID LEUKAEMIA
     Dosage: 360 MG, CYCLIC (FROM DAY1 TO DAY 7)
     Dates: start: 20160129, end: 2016
  2. TOPALGIC [Concomitant]
     Active Substance: TRAMADOL
     Indication: PAIN
     Dosage: UNK UNK, AS NEEDED
  3. DUPHALAC [Concomitant]
     Active Substance: LACTULOSE
     Indication: CONSTIPATION
     Dosage: UNK UNK, AS NEEDED
  4. GEMTUZUMAB OZOGAMICIN [Suspect]
     Active Substance: GEMTUZUMAB OZOGAMICIN
     Dosage: 5 MG, CYCLIC (DAY 1)
     Dates: start: 20160316, end: 20160316
  5. GEMTUZUMAB OZOGAMICIN [Suspect]
     Active Substance: GEMTUZUMAB OZOGAMICIN
     Dosage: 5 MG, CYCLIC (DAY 1)
     Dates: start: 20160503, end: 20160503
  6. CYTARABINE. [Suspect]
     Active Substance: CYTARABINE
     Dosage: 1700 MG, CYCLIC FROM DAY1 TO DAY 4
     Dates: start: 20160503, end: 20160506
  7. NOXAFIL [Suspect]
     Active Substance: POSACONAZOLE
     Indication: ANTIFUNGAL PROPHYLAXIS
     Dosage: UNK
     Route: 048
     Dates: start: 20160205, end: 20160219
  8. NOXAFIL [Suspect]
     Active Substance: POSACONAZOLE
     Dosage: UNK
     Route: 048
     Dates: start: 20160509, end: 20160523
  9. ONDASETRON /00955301/ [Concomitant]
     Active Substance: ONDANSETRON
     Dosage: 8 MG, 1X/DAY FROM DAY1 TO DAY4
     Dates: start: 20160503
  10. PRIMPERAN [Concomitant]
     Active Substance: METOCLOPRAMIDE HYDROCHLORIDE
     Indication: NAUSEA
     Dosage: UNK UNK, AS NEEDED
  11. DAUNORUBICINE [Suspect]
     Active Substance: DAUNORUBICIN
     Dosage: 105 MG, CYCLIC, DAY 1
     Dates: start: 20160316, end: 20160316
  12. XANAX [Concomitant]
     Active Substance: ALPRAZOLAM
     Indication: ANXIETY
     Dosage: UNK UNK, AS NEEDED
  13. TIORFAN [Concomitant]
     Active Substance: RACECADOTRIL
     Indication: DIARRHOEA
     Dosage: UNK UNK, AS NEEDED
  14. GEMTUZUMAB OZOGAMICIN [Suspect]
     Active Substance: GEMTUZUMAB OZOGAMICIN
     Indication: ACUTE MYELOID LEUKAEMIA
     Dosage: 5 MG, CYCLIC (AT DAY 1, DAY 4 AND DAY 7)
     Route: 042
     Dates: start: 20160129, end: 2016
  15. CYTARABINE. [Suspect]
     Active Substance: CYTARABINE
     Dosage: 1700 MG, CYCLIC FROM DAY1 TO DAY 4
     Dates: start: 20160316, end: 201603
  16. NOXAFIL [Suspect]
     Active Substance: POSACONAZOLE
     Dosage: UNK
     Route: 048
     Dates: start: 20160320, end: 20160330
  17. DAUNORUBICINE [Suspect]
     Active Substance: DAUNORUBICIN
     Indication: ACUTE MYELOID LEUKAEMIA
     Dosage: 105 MG, CYCLIC FROM DAY1 TO DAY3
     Dates: start: 20160129, end: 2016
  18. DAUNORUBICINE [Suspect]
     Active Substance: DAUNORUBICIN
     Dosage: 105 MG, CYCLIC, DAY 1
     Dates: start: 20160503, end: 20160503
  19. ONDASETRON /00955301/ [Concomitant]
     Active Substance: ONDANSETRON
     Dosage: 8 MG, 1X/DAY FROM DAY1 TO DAY4
     Route: 042
     Dates: start: 20160316

REACTIONS (3)
  - Cholestasis [Not Recovered/Not Resolved]
  - Hepatocellular injury [Recovered/Resolved]
  - Hepatic enzyme increased [Not Recovered/Not Resolved]

NARRATIVE: CASE EVENT DATE: 20160205
